FAERS Safety Report 14066315 (Version 4)
Quarter: 2017Q4

REPORT INFORMATION
  Report Type: Spontaneous
  Country: US (occurrence: US)
  Receive Date: 20171009
  Receipt Date: 20171031
  Transmission Date: 20180321
  Serious: Yes (Hospitalization)
  Sender: FDA-Public Use
  Company Number: US-CELGENEUS-USA-20170908398

PATIENT
  Age: 83 Year
  Sex: Female
  Weight: 65.83 kg

DRUGS (3)
  1. MAALOX ANTACID [Concomitant]
     Active Substance: ALUMINUM HYDROXIDE\DIMETHICONE\MAGNESIUM HYDROXIDE
     Indication: PRODUCT USED FOR UNKNOWN INDICATION
     Route: 065
     Dates: start: 201709
  2. REVLIMID [Suspect]
     Active Substance: LENALIDOMIDE
     Indication: PLASMA CELL MYELOMA
     Dosage: 20 MILLIGRAM
     Route: 048
     Dates: start: 201708
  3. REVLIMID [Suspect]
     Active Substance: LENALIDOMIDE
     Indication: IMMUNE THROMBOCYTOPENIC PURPURA
     Dosage: 20 MILLIGRAM
     Route: 048
     Dates: start: 20170924

REACTIONS (8)
  - Decreased appetite [Unknown]
  - Gastrointestinal disorder [Unknown]
  - Blood sodium decreased [Unknown]
  - Dehydration [Unknown]
  - Blood potassium decreased [Unknown]
  - Clostridium difficile infection [Not Recovered/Not Resolved]
  - Sepsis [Not Recovered/Not Resolved]
  - Full blood count decreased [Unknown]

NARRATIVE: CASE EVENT DATE: 20170921
